FAERS Safety Report 19906093 (Version 1)
Quarter: 2021Q3

REPORT INFORMATION
  Report Type: Spontaneous
  Country: US (occurrence: US)
  Receive Date: 20210930
  Receipt Date: 20210930
  Transmission Date: 20211014
  Serious: No
  Sender: FDA-Public Use
  Company Number: US-MYLANLABS-2021M1064883

PATIENT
  Age: 76 Year
  Sex: Female

DRUGS (1)
  1. MUSE [Suspect]
     Active Substance: ALPROSTADIL
     Indication: PRODUCT USED FOR UNKNOWN INDICATION
     Dosage: UNK
     Route: 066

REACTIONS (5)
  - Vulvovaginal discomfort [Recovering/Resolving]
  - Oral discomfort [Recovering/Resolving]
  - Musculoskeletal discomfort [Recovering/Resolving]
  - Anorectal discomfort [Recovering/Resolving]
  - Limb discomfort [Recovering/Resolving]
